FAERS Safety Report 4355314-0 (Version None)
Quarter: 2004Q2

REPORT INFORMATION
  Report Type: 
  Country: None (occurrence: None)
  Receive Date: 20040505
  Receipt Date: 20040419
  Transmission Date: 20050107
  Serious: Yes (Other)
  Sender: FDA-Public Use
  Company Number: GB-JNJFOC-20040406493

PATIENT
  Age: 60 Year
  Sex: Male
  Weight: 70 kg

DRUGS (7)
  1. REMINYL [Suspect]
     Indication: DEMENTIA
     Dosage: SEE IMAGE
     Dates: start: 20030430
  2. BENDROFLUAZIDE (BENDROFLUAZIDE) [Concomitant]
  3. CANDESARTAN (CANSESARTAN) [Concomitant]
  4. AMLODIPINE [Concomitant]
  5. ATROVASTATIN (ATROVASTATIN) [Concomitant]
  6. CO-DYDRAMAOL (PARAMOL-118) [Concomitant]
  7. ACETYLSALICYLIC ACID SRT [Concomitant]

REACTIONS (1)
  - BLOOD CREATININE INCREASED [None]
